FAERS Safety Report 9062775 (Version 1)
Quarter: 2013Q1

REPORT INFORMATION
  Report Type: Spontaneous
  Country: US (occurrence: US)
  Receive Date: 20130128
  Receipt Date: 20130128
  Transmission Date: 20140127
  Serious: Yes (Hospitalization)
  Sender: FDA-Public Use
  Company Number: US-BAYER-2013-008867

PATIENT
  Age: 39 Year
  Sex: Female
  Weight: 75.74 kg

DRUGS (13)
  1. YAZ [Suspect]
     Indication: CONTRACEPTION
  2. NEXIUM [Concomitant]
     Dosage: 40 MG, UNK
     Route: 048
  3. ASTELIN [Concomitant]
     Dosage: 137 ?G, UNK
     Route: 045
  4. CLARITHROMYCIN [Concomitant]
     Dosage: 125 MG/5 ML
  5. CLARITHROMYCIN [Concomitant]
     Dosage: UNK
  6. ALLEGRA [Concomitant]
     Dosage: 30 MG/5 ML
  7. ALLEGRA [Concomitant]
     Dosage: UNK
  8. DIPHENOXYLATE/ATROPINE [DIPHENOXYLATE HYDROCHLORIDE] [Concomitant]
  9. VYTORIN [Concomitant]
     Indication: BLOOD CHOLESTEROL INCREASED
     Dosage: 10-40 MG
  10. ASTEPRO [Concomitant]
     Dosage: 0.15 %, UNK
     Route: 045
  11. PRILOSEC [Concomitant]
     Dosage: OTC P.R.N
  12. BIOTIN [Concomitant]
     Dosage: ONCE A DAY
  13. AMPICILLIN [Concomitant]
     Dosage: 250 MG/5 ML SUSPENSION

REACTIONS (1)
  - Deep vein thrombosis [Recovered/Resolved]
